FAERS Safety Report 5479841-8 (Version None)
Quarter: 2007Q4

REPORT INFORMATION
  Report Type: 
  Country: None (occurrence: None)
  Receive Date: 20071008
  Receipt Date: 20070924
  Transmission Date: 20080405
  Serious: Yes (Life-Threatening, Hospitalization, Other)
  Sender: FDA-Public Use
  Company Number: FR-BRISTOL-MYERS SQUIBB COMPANY-13902374

PATIENT
  Age: 46 Year
  Sex: Female

DRUGS (3)
  1. CETUXIMAB [Suspect]
     Indication: SQUAMOUS CELL CARCINOMA OF THE CERVIX
     Dosage: ,250 MG/M2 MOST RECENT INFUSION 23JUL2007
     Route: 042
     Dates: start: 20070717, end: 20070717
  2. CISPLATIN [Suspect]
     Indication: SQUAMOUS CELL CARCINOMA OF THE CERVIX
     Dosage: DOSE REDUCED TO 40MG;MOST RECENT INFUSION 23JUL2007
     Route: 042
     Dates: start: 20070717, end: 20070717
  3. TOPOTECAN [Suspect]
     Indication: SQUAMOUS CELL CARCINOMA OF THE CERVIX
     Dosage: DOSE REDUCED TO 60MG;MOST RECENT INFUSION ON 19JUL2007 AND 23JUL2007
     Dates: start: 20070717, end: 20070717

REACTIONS (5)
  - ANAEMIA [None]
  - FEBRILE BONE MARROW APLASIA [None]
  - PAIN [None]
  - RENAL FAILURE [None]
  - THROMBOCYTOPENIA [None]
